FAERS Safety Report 7673385-0 (Version None)
Quarter: 2011Q3

REPORT INFORMATION
  Report Type: 
  Country: None (occurrence: None)
  Receive Date: 20110810
  Receipt Date: 20110801
  Transmission Date: 20111222
  Serious: Yes (Hospitalization, Other)
  Sender: FDA-Public Use
  Company Number: US-JNJFOC-20101006492

PATIENT
  Sex: Female
  Weight: 38.5 kg

DRUGS (6)
  1. PREVACID [Concomitant]
  2. INFLIXIMAB, RECOMBINANT [Suspect]
     Indication: CROHN'S DISEASE
     Route: 042
     Dates: start: 20100922
  3. INFLIXIMAB, RECOMBINANT [Suspect]
     Dosage: TOTAL 2 DOSES
     Route: 042
     Dates: start: 20101008
  4. MERCAPTOPURINE [Concomitant]
  5. MESALAMINE [Concomitant]
     Route: 048
  6. METRONIDAZOLE [Concomitant]

REACTIONS (1)
  - CROHN'S DISEASE [None]
